FAERS Safety Report 10243813 (Version 1)
Quarter: 2014Q2

REPORT INFORMATION
  Report Type: Spontaneous
  Country: CA (occurrence: CA)
  Receive Date: 20140618
  Receipt Date: 20140618
  Transmission Date: 20141212
  Serious: Yes (Hospitalization)
  Sender: FDA-Public Use
  Company Number: CA-PFIZER INC-2014164452

PATIENT
  Sex: 0

DRUGS (5)
  1. DOXORUBICIN HCL [Suspect]
     Dosage: 10 MG/M2, CYCLIC
     Route: 042
  2. CISPLATIN [Suspect]
     Dosage: 10 MG/M2, CYCLIC
     Route: 042
  3. CYCLOPHOSPHAMIDE [Suspect]
     Dosage: 400 MG/M2, CYCLIC
     Route: 042
  4. DEXAMETHASONE [Suspect]
     Dosage: 40 MG, CYCLIC
     Route: 048
  5. ETOPOSIDE [Suspect]
     Dosage: 40 MG/M2, CYCLIC
     Route: 042

REACTIONS (1)
  - Stress [Unknown]
